FAERS Safety Report 9498405 (Version 1)
Quarter: 2013Q3

REPORT INFORMATION
  Report Type: Spontaneous
  Country: US (occurrence: US)
  Receive Date: 20130904
  Receipt Date: 20130904
  Transmission Date: 20140515
  Serious: Yes (Other)
  Sender: FDA-Public Use
  Company Number: US-GLAXOSMITHKLINE-A1038101A

PATIENT
  Sex: Female

DRUGS (1)
  1. PROMACTA [Suspect]
     Indication: APLASTIC ANAEMIA
     Dosage: 50MG UNKNOWN
     Route: 065
     Dates: start: 20110608

REACTIONS (2)
  - Transfusion [Unknown]
  - Platelet count decreased [Unknown]
